FAERS Safety Report 11327003 (Version 1)
Quarter: 2015Q3

REPORT INFORMATION
  Report Type: Spontaneous
  Country: US (occurrence: US)
  Receive Date: 20150731
  Receipt Date: 20150731
  Transmission Date: 20151125
  Serious: Yes (Disabling, Other)
  Sender: FDA-Public Use
  Company Number: US-009507513-1507USA013201

PATIENT
  Sex: Female

DRUGS (3)
  1. INVOKANA [Concomitant]
     Active Substance: CANAGLIFLOZIN
  2. JANUMET [Suspect]
     Active Substance: METFORMIN HYDROCHLORIDE\SITAGLIPTIN PHOSPHATE
     Route: 048
  3. TOUJEO [Concomitant]
     Active Substance: INSULIN GLARGINE

REACTIONS (13)
  - Impaired driving ability [Unknown]
  - Pain [Unknown]
  - Muscle twitching [Unknown]
  - Thyroid disorder [Unknown]
  - Arthritis [Unknown]
  - Lymphadenopathy [Unknown]
  - Blood glucose increased [Unknown]
  - Systemic lupus erythematosus [Unknown]
  - Pruritus [Unknown]
  - Musculoskeletal disorder [Unknown]
  - Depression [Unknown]
  - Memory impairment [Unknown]
  - Visual impairment [Unknown]
